FAERS Safety Report 24864304 (Version 1)
Quarter: 2025Q1

REPORT INFORMATION
  Report Type: Report from Study
  Country: CA (occurrence: CA)
  Receive Date: 20250120
  Receipt Date: 20250120
  Transmission Date: 20250408
  Serious: Yes (Other)
  Sender: ABBVIE
  Company Number: CA-ABBVIE-6087807

PATIENT
  Age: 48 Year
  Sex: Female

DRUGS (1)
  1. SKYRIZI [Suspect]
     Active Substance: RISANKIZUMAB-RZAA
     Indication: Crohn^s disease
     Route: 058
     Dates: start: 20240514

REACTIONS (12)
  - Intestinal obstruction [Unknown]
  - Large intestinal stenosis [Unknown]
  - Colitis [Unknown]
  - Proctalgia [Recovering/Resolving]
  - Sitting disability [Unknown]
  - Fistula [Unknown]
  - Wound cellulitis [Unknown]
  - Gastrointestinal inflammation [Unknown]
  - Haemorrhoids [Unknown]
  - Ileal ulcer [Unknown]
  - Fall [Unknown]
  - Anorectal disorder [Unknown]

NARRATIVE: CASE EVENT DATE: 20240101
